FAERS Safety Report 7626712-4 (Version None)
Quarter: 2011Q3

REPORT INFORMATION
  Report Type: 
  Country: None (occurrence: None)
  Receive Date: 20110721
  Receipt Date: 20110711
  Transmission Date: 20111222
  Serious: Yes (Hospitalization)
  Sender: FDA-Public Use
  Company Number: DE-NAPPMUNDI-DEU-2011-0007540

PATIENT
  Age: 68 Year
  Sex: Male

DRUGS (4)
  1. TRICYCLIC ANTIDEPRESSANTS [Concomitant]
  2. ANALGESICS [Concomitant]
     Indication: PAIN
  3. HYDROMORPHONE HYDROCHLORIDE [Suspect]
     Indication: PAIN
     Dosage: 2.6 MG, PRN
     Route: 048
     Dates: start: 20101001
  4. HYDROMORPHONE HCL [Suspect]
     Indication: PAIN
     Dosage: 64 MG, UNK

REACTIONS (1)
  - HYPERTENSIVE CRISIS [None]
